FAERS Safety Report 11281786 (Version 1)
Quarter: 2015Q3

REPORT INFORMATION
  Report Type: Spontaneous
  Country: GB (occurrence: GB)
  Receive Date: 20150717
  Receipt Date: 20150717
  Transmission Date: 20151125
  Serious: Yes (Other)
  Sender: FDA-Public Use
  Company Number: GB-BAUSCH-BL-2015-016995

PATIENT
  Age: 65 Year
  Sex: Female
  Weight: 107.95 kg

DRUGS (2)
  1. MOVIPREP [Suspect]
     Active Substance: ASCORBIC ACID\POLYETHYLENE GLYCOL 3350\POTASSIUM CHLORIDE\SODIUM ASCORBATE\SODIUM CHLORIDE\SODIUM SULFATE
     Indication: COLONOSCOPY
     Route: 048
     Dates: start: 2015, end: 2015
  2. TEGRETOL [Concomitant]
     Active Substance: CARBAMAZEPINE
     Indication: PRODUCT USED FOR UNKNOWN INDICATION

REACTIONS (4)
  - Condition aggravated [Not Recovered/Not Resolved]
  - Vomiting [Unknown]
  - Neuralgia [Not Recovered/Not Resolved]
  - Malaise [Not Recovered/Not Resolved]
